FAERS Safety Report 8051028-4 (Version None)
Quarter: 2012Q1

REPORT INFORMATION
  Report Type: 
  Country: None (occurrence: None)
  Receive Date: 20120117
  Receipt Date: 20120111
  Transmission Date: 20120608
  Serious: Yes (Death)
  Sender: FDA-Public Use
  Company Number: PHHY2011CA39686

PATIENT
  Sex: Male

DRUGS (6)
  1. SANDOSTATIN LAR [Suspect]
     Indication: NEUROENDOCRINE TUMOUR
     Dosage: 30 MG, EVERY 4 WEEKS
     Route: 030
     Dates: start: 20110427, end: 20111208
  2. LACTULOSE [Concomitant]
     Dosage: 30 CM3, QD
     Route: 048
  3. FENTANYL [Concomitant]
     Route: 065
  4. PANTOPRAZOLE SODIUM [Concomitant]
     Dosage: 40 MG, QD
     Route: 048
  5. FUROSEMIDE [Concomitant]
     Dosage: 40 MG, QD
     Route: 048
  6. OXYCODONE HCL [Concomitant]
     Dosage: UNK UKN, UNK
     Route: 065

REACTIONS (7)
  - NEOPLASM MALIGNANT [None]
  - ABDOMINAL PAIN UPPER [None]
  - METASTASES TO LIVER [None]
  - OEDEMA PERIPHERAL [None]
  - SOMNOLENCE [None]
  - DIARRHOEA [None]
  - FLUSHING [None]
